FAERS Safety Report 9714925 (Version 1)
Quarter: 2013Q4

REPORT INFORMATION
  Report Type: Spontaneous
  Country: FR (occurrence: FR)
  Receive Date: 20131126
  Receipt Date: 20131126
  Transmission Date: 20140711
  Serious: Yes (Hospitalization, Other)
  Sender: FDA-Public Use
  Company Number: FR-PFIZER INC-2013332224

PATIENT
  Age: 74 Year
  Sex: Male

DRUGS (6)
  1. TAHOR [Suspect]
     Indication: PROPHYLAXIS
     Dosage: 20 MG, 1X/DAY
     Route: 048
  2. PREVISCAN [Interacting]
     Indication: VENOUS THROMBOSIS
     Dosage: 11.25 MG, 1X/DAY
     Route: 048
     Dates: start: 2008, end: 20131021
  3. PLAVIX [Interacting]
     Dosage: 75 MG, 1X/DAY
     Route: 048
     Dates: end: 20131021
  4. LASILIX [Concomitant]
     Indication: HYPERTENSIVE HEART DISEASE
     Dosage: 40 MG, 1X/DAY
     Route: 048
     Dates: end: 20131021
  5. ALPRESS LP [Concomitant]
     Indication: HYPERTENSION
     Dosage: 5 MG, 1X/DAY
     Route: 048
     Dates: end: 20131021
  6. COAPROVEL [Concomitant]
     Indication: HYPERTENSION
     Dosage: 300 MG/12.5 MG, UNK
     Route: 048
     Dates: end: 20131021

REACTIONS (6)
  - Melaena [Recovered/Resolved]
  - Anaemia [Recovered/Resolved]
  - Drug interaction [Recovered/Resolved]
  - Epistaxis [Unknown]
  - Weight decreased [Unknown]
  - Diverticulum [Unknown]
